FAERS Safety Report 24560565 (Version 1)
Quarter: 2024Q4

REPORT INFORMATION
  Report Type: Report from Study
  Country: US (occurrence: US)
  Receive Date: 20241029
  Receipt Date: 20241029
  Transmission Date: 20250114
  Serious: Yes (Hospitalization)
  Sender: VERTEX
  Company Number: US-VERTEX PHARMACEUTICALS-2024-016783

PATIENT
  Age: 46 Year
  Sex: Female

DRUGS (32)
  1. TRIKAFTA [Suspect]
     Active Substance: ELEXACAFTOR\IVACAFTOR\TEZACAFTOR
     Indication: Cystic fibrosis
     Dosage: 2 TABS IN AM, 1 IN PM
     Route: 048
     Dates: start: 20191126
  2. ACETAMINOPHEN [Concomitant]
     Active Substance: ACETAMINOPHEN
  3. SODIUM CHLORIDE [Concomitant]
     Active Substance: SODIUM CHLORIDE
     Dosage: SPRAY
     Route: 045
  4. MELATONIN [Concomitant]
     Active Substance: MELATONIN
  5. ATORVASTATIN [Concomitant]
     Active Substance: ATORVASTATIN
  6. BAQSIMI [Concomitant]
     Active Substance: GLUCAGON
  7. BISACODYL [Concomitant]
     Active Substance: BISACODYL
  8. CALCITRIOL [Concomitant]
     Active Substance: CALCITRIOL
  9. CALCIUM CITRATE [Concomitant]
     Active Substance: CALCIUM CITRATE
  10. CETIRIZINE [Concomitant]
     Active Substance: CETIRIZINE HYDROCHLORIDE
  11. CLONAZEPAM [Concomitant]
     Active Substance: CLONAZEPAM
  12. COLISTIMETHATE [Concomitant]
     Active Substance: COLISTIMETHATE SODIUM
  13. CREON [Concomitant]
     Active Substance: PANCRELIPASE AMYLASE\PANCRELIPASE LIPASE\PANCRELIPASE PROTEASE
  14. GABAPENTIN [Concomitant]
     Active Substance: GABAPENTIN
  15. HUMALOG [Concomitant]
     Active Substance: INSULIN LISPRO
  16. HYDROXYCHLOROQUINE [Concomitant]
     Active Substance: HYDROXYCHLOROQUINE
  17. LEVOTHYROXINE [Concomitant]
     Active Substance: LEVOTHYROXINE
  18. LUPRON [Concomitant]
     Active Substance: LEUPROLIDE ACETATE
  19. OMEPRAZOLE [Concomitant]
     Active Substance: OMEPRAZOLE
  20. OXYCODONE [Concomitant]
     Active Substance: OXYCODONE
  21. POTASSIUM CITRATE [Concomitant]
     Active Substance: POTASSIUM CITRATE
  22. PULMOZYME [Concomitant]
     Active Substance: DORNASE ALFA
  23. SERTRALINE [Concomitant]
     Active Substance: SERTRALINE HYDROCHLORIDE
  24. SINGULAIR [Concomitant]
     Active Substance: MONTELUKAST SODIUM
  25. SODIUM CHLORIDE [Concomitant]
     Active Substance: SODIUM CHLORIDE
     Route: 055
  26. CITRIC ACID MONOHYDRATE\SODIUM CITRATE [Concomitant]
     Active Substance: CITRIC ACID MONOHYDRATE\SODIUM CITRATE
  27. VITAMIN D3 [Concomitant]
     Active Substance: CHOLECALCIFEROL
  28. ZINC SULFATE [Concomitant]
     Active Substance: ZINC SULFATE
  29. MINERALS\VITAMINS [Concomitant]
     Active Substance: MINERALS\VITAMINS
  30. DOCUSATE [Concomitant]
     Active Substance: DOCUSATE
  31. ALUMINUM CHLORIDE [Concomitant]
     Active Substance: ALUMINUM CHLORIDE
  32. AZITHROMYCIN [Concomitant]
     Active Substance: AZITHROMYCIN

REACTIONS (5)
  - Infective pulmonary exacerbation of cystic fibrosis [Recovering/Resolving]
  - Nephrolithiasis [Not Recovered/Not Resolved]
  - Sleep disorder [Not Recovered/Not Resolved]
  - Loss of personal independence in daily activities [Not Recovered/Not Resolved]
  - Disturbance in social behaviour [Not Recovered/Not Resolved]

NARRATIVE: CASE EVENT DATE: 20241008
